FAERS Safety Report 8677917 (Version 2)
Quarter: 2013Q1

REPORT INFORMATION
  Report Type: Spontaneous
  Country: GB (occurrence: None)
  Receive Date: 20120705
  Receipt Date: 20121025
  Transmission Date: 20140127
  Serious: Yes (Other)
  Sender: FDA-Public Use
  Company Number: DSA_58226_2012

PATIENT
  Age: 69 Year
  Sex: Male

DRUGS (6)
  1. METRONIDAZOLE [Suspect]
     Indication: INFECTION
     Route: 048
     Dates: start: 20111117, end: 20111118
  2. CO-CODAMOL [Concomitant]
  3. DICLOFENAC [Concomitant]
  4. ANTIEPILEPTICS [Concomitant]
  5. VALPROIC ACID [Concomitant]
  6. AMOXICILLIN [Concomitant]

REACTIONS (1)
  - Epilepsy [None]
